FAERS Safety Report 24174541 (Version 1)
Quarter: 2024Q3

REPORT INFORMATION
  Report Type: Spontaneous
  Country: US (occurrence: US)
  Receive Date: 20240805
  Receipt Date: 20240805
  Transmission Date: 20241017
  Serious: Yes (Other)
  Sender: MYLAN
  Company Number: US-MYLANLABS-2024M1071574

PATIENT
  Sex: Female

DRUGS (3)
  1. PREDNISONE [Suspect]
     Active Substance: PREDNISONE
     Indication: Lupus anticoagulant hypoprothrombinaemia syndrome
     Dosage: 1 MILLIGRAM/KILOGRAM
     Route: 065
  2. HYDROXYCHLOROQUINE [Concomitant]
     Active Substance: HYDROXYCHLOROQUINE
     Indication: Lupus anticoagulant hypoprothrombinaemia syndrome
     Dosage: UNK
     Route: 065
  3. MYCOPHENOLATE MOFETIL [Concomitant]
     Active Substance: MYCOPHENOLATE MOFETIL
     Indication: Lupus anticoagulant hypoprothrombinaemia syndrome
     Dosage: UNK, INITIATED AND LATER TITRATED TO A DOSE OF 1000 MG TWICE DAILY
     Route: 065

REACTIONS (2)
  - Lupus anticoagulant hypoprothrombinaemia syndrome [Recovering/Resolving]
  - Rebound effect [Recovering/Resolving]
